FAERS Safety Report 24803393 (Version 1)
Quarter: 2025Q1

REPORT INFORMATION
  Report Type: Spontaneous
  Country: SG (occurrence: SG)
  Receive Date: 20250103
  Receipt Date: 20250103
  Transmission Date: 20250408
  Serious: Yes (Other)
  Sender: ALKEM
  Company Number: None

PATIENT
  Age: 30 Year
  Sex: Male

DRUGS (15)
  1. METHYLPREDNISOLONE [Suspect]
     Active Substance: METHYLPREDNISOLONE
     Indication: Dermatomyositis
     Dosage: 500 MILLIGRAM, QD
     Route: 042
  2. TACROLIMUS [Suspect]
     Active Substance: TACROLIMUS
     Indication: Product used for unknown indication
     Dosage: 2 MILLIGRAM, QD
     Route: 065
  3. TOFACITINIB [Suspect]
     Active Substance: TOFACITINIB
     Indication: Dermatomyositis
     Dosage: 5 MILLIGRAM, BID
     Route: 065
  4. TOFACITINIB [Suspect]
     Active Substance: TOFACITINIB
     Dosage: 15 MILLIGRAM, QD
     Route: 048
  5. TOFACITINIB [Suspect]
     Active Substance: TOFACITINIB
     Route: 065
  6. HYDROCORTISONE [Suspect]
     Active Substance: HYDROCORTISONE
     Indication: Product used for unknown indication
     Route: 042
  7. BARICITINIB [Suspect]
     Active Substance: BARICITINIB
     Indication: Product used for unknown indication
     Dosage: 2 MILLIGRAM, QD
     Route: 065
  8. DARATUMUMAB [Suspect]
     Active Substance: DARATUMUMAB
     Indication: Gastroenteritis
     Route: 042
  9. HYDROXYCHLOROQUINE [Suspect]
     Active Substance: HYDROXYCHLOROQUINE
     Indication: Product used for unknown indication
     Route: 048
  10. NINTEDANIB [Suspect]
     Active Substance: NINTEDANIB
     Indication: Pulmonary fibrosis
     Dosage: 100 MILLIGRAM, BID
     Route: 065
  11. PREDNISOLONE [Suspect]
     Active Substance: PREDNISOLONE
     Indication: Product used for unknown indication
     Route: 065
  12. PREDNISOLONE [Suspect]
     Active Substance: PREDNISOLONE
     Dosage: 12.5 MILLIGRAM, QD
     Route: 048
  13. PREDNISOLONE [Suspect]
     Active Substance: PREDNISOLONE
     Dosage: 45 MILLIGRAM, QD
     Route: 065
  14. PREDNISOLONE [Suspect]
     Active Substance: PREDNISOLONE
     Route: 065
  15. RITUXIMAB [Suspect]
     Active Substance: RITUXIMAB
     Indication: Dermatomyositis
     Route: 042

REACTIONS (8)
  - Dermatomyositis [Unknown]
  - Disease recurrence [Unknown]
  - Hypertransaminasaemia [Recovering/Resolving]
  - Drug intolerance [Unknown]
  - Infection [Unknown]
  - Cellulitis [Unknown]
  - Gastroenteritis [Unknown]
  - COVID-19 [Unknown]
